FAERS Safety Report 25416241 (Version 2)
Quarter: 2025Q3

REPORT INFORMATION
  Report Type: Report from Study
  Country: US (occurrence: US)
  Receive Date: 20250610
  Receipt Date: 20250812
  Transmission Date: 20251020
  Serious: Yes (Other)
  Sender: ABBVIE
  Company Number: US-ABBVIE-6315104

PATIENT
  Age: 54 Year
  Sex: Female

DRUGS (1)
  1. HUMIRA [Suspect]
     Active Substance: ADALIMUMAB
     Indication: Crohn^s disease
     Route: 058
     Dates: start: 20250307

REACTIONS (8)
  - Anal cancer [Recovered/Resolved]
  - Uveitis [Recovering/Resolving]
  - Dry eye [Recovered/Resolved]
  - Muscle spasms [Unknown]
  - Vision blurred [Unknown]
  - Diarrhoea [Unknown]
  - Gastrointestinal pain [Recovered/Resolved]
  - Therapeutic response shortened [Recovered/Resolved]

NARRATIVE: CASE EVENT DATE: 20250101
